FAERS Safety Report 7156117-4 (Version None)
Quarter: 2010Q4

REPORT INFORMATION
  Report Type: 
  Country: None (occurrence: None)
  Receive Date: 20101214
  Receipt Date: 20101208
  Transmission Date: 20110411
  Serious: Yes (Other)
  Sender: FDA-Public Use
  Company Number: US-AMGEN-QUU423963

PATIENT

DRUGS (3)
  1. NPLATE [Suspect]
     Indication: IDIOPATHIC THROMBOCYTOPENIC PURPURA
     Dosage: 400 A?G, QWK
     Route: 058
     Dates: start: 20100120, end: 20100513
  2. NPLATE [Suspect]
     Dosage: UNK
     Dates: start: 20100609, end: 20101012
  3. IMMUNOGLOBULINS [Concomitant]
     Dosage: UNK UNK, UNK
     Route: 042
     Dates: start: 20050707

REACTIONS (5)
  - BLOOD SMEAR TEST ABNORMAL [None]
  - BONE MARROW DISORDER [None]
  - CD4/CD8 RATIO DECREASED [None]
  - EPISTAXIS [None]
  - PETECHIAE [None]
